FAERS Safety Report 15924325 (Version 1)
Quarter: 2019Q1

REPORT INFORMATION
  Report Type: Spontaneous
  Country: US (occurrence: US)
  Receive Date: 20190114
  Receipt Date: 20190114
  Transmission Date: 20190417
  Serious: No
  Sender: FDA-Public Use
  Company Number: None

PATIENT

DRUGS (1)
  1. INFLECTRA [Suspect]
     Active Substance: INFLIXIMAB-DYYB
     Dates: start: 201801

REACTIONS (5)
  - Off label use [None]
  - Treatment failure [None]
  - Pain [None]
  - Condition aggravated [None]
  - Discomfort [None]

NARRATIVE: CASE EVENT DATE: 20190114
